FAERS Safety Report 11145658 (Version 1)
Quarter: 2015Q2

REPORT INFORMATION
  Report Type: Report from Study
  Country: FR (occurrence: FR)
  Receive Date: 20150528
  Receipt Date: 20150528
  Transmission Date: 20150821
  Serious: Yes (Other)
  Sender: FDA-Public Use
  Company Number: FR-RECKITT BENCKISER PHARMACEUTICAL, INC-RB-079747-2015

PATIENT
  Sex: Male

DRUGS (2)
  1. SUBUTEX [Suspect]
     Active Substance: BUPRENORPHINE HYDROCHLORIDE
     Indication: DEPENDENCE
     Dosage: MORE THAN 16 MG
     Route: 045
     Dates: start: 2008
  2. ALCOHOL. [Suspect]
     Active Substance: ALCOHOL
     Indication: PRODUCT USED FOR UNKNOWN INDICATION
     Dosage: UNK
     Route: 065
     Dates: start: 2008

REACTIONS (6)
  - Intentional product use issue [Not Recovered/Not Resolved]
  - Alcohol abuse [Unknown]
  - Feeling abnormal [Unknown]
  - Drug dependence [Unknown]
  - Blindness [Unknown]
  - Substance abuse [Unknown]

NARRATIVE: CASE EVENT DATE: 2008
